FAERS Safety Report 9973798 (Version 1)
Quarter: 2014Q1

REPORT INFORMATION
  Report Type: Spontaneous
  Country: FR (occurrence: FR)
  Receive Date: 20140306
  Receipt Date: 20140306
  Transmission Date: 20141002
  Serious: Yes (Hospitalization)
  Sender: FDA-Public Use
  Company Number: FR-ASTRAZENECA-2014SE14572

PATIENT
  Age: 26701 Day
  Sex: Female

DRUGS (18)
  1. NAROPEINE [Suspect]
     Route: 042
     Dates: start: 20130930, end: 20130930
  2. PROPOFOL PANPHARMA [Suspect]
     Route: 042
     Dates: start: 20130930, end: 20130930
  3. MIDAZOLAM [Suspect]
     Route: 042
     Dates: start: 20130930, end: 20130930
  4. TACRIUM [Suspect]
     Route: 042
     Dates: start: 20130930, end: 20130930
  5. DEXAMETHASONE [Suspect]
     Route: 042
     Dates: start: 20130930, end: 20130930
  6. KETAMINE [Suspect]
     Route: 042
     Dates: start: 20130930, end: 20130930
  7. SUFENTA [Suspect]
     Route: 042
     Dates: start: 20130930, end: 20130930
  8. ACUPAN [Suspect]
     Route: 042
     Dates: start: 20130930, end: 20130930
  9. EXACYL [Suspect]
     Route: 042
     Dates: start: 20130930, end: 20130930
  10. EPREX [Suspect]
     Route: 042
     Dates: start: 20130930, end: 20130930
  11. XANAX [Suspect]
     Route: 048
     Dates: start: 20130929, end: 20130930
  12. PANTOPRAZOLE [Suspect]
     Route: 048
     Dates: start: 20130930, end: 20131002
  13. BIPROFENID [Suspect]
     Route: 048
     Dates: start: 20130930, end: 20131002
  14. PERFALGAN [Concomitant]
     Route: 042
     Dates: start: 20130930
  15. ACTISKENAN [Concomitant]
     Route: 048
     Dates: start: 20130930
  16. RAMIPRIL ACTAVIS [Concomitant]
     Route: 048
     Dates: end: 20130928
  17. LEVOTHYROX [Concomitant]
     Route: 048
  18. LAROXYL [Concomitant]
     Route: 048

REACTIONS (3)
  - Renal failure acute [Recovered/Resolved]
  - Pancreatitis acute [Recovered/Resolved]
  - Lipase increased [Recovered/Resolved]
